FAERS Safety Report 11374973 (Version 1)
Quarter: 2015Q3

REPORT INFORMATION
  Report Type: Spontaneous
  Country: IT (occurrence: IT)
  Receive Date: 20150813
  Receipt Date: 20150813
  Transmission Date: 20151125
  Serious: Yes (Other)
  Sender: FDA-Public Use
  Company Number: IT-ASTRAZENECA-2014SE45527

PATIENT
  Age: 66 Year
  Sex: Female

DRUGS (5)
  1. ARIMIDEX [Suspect]
     Active Substance: ANASTROZOLE
     Route: 048
  2. RANIBEN (RANITIDINE) [Concomitant]
     Indication: GASTROOESOPHAGEAL REFLUX DISEASE
     Dates: start: 1970
  3. ARIMIDEX [Suspect]
     Active Substance: ANASTROZOLE
     Route: 048
     Dates: start: 201404
  4. DRUGS USED IN CHEMOTHERAPY [Concomitant]
     Indication: CHEMOTHERAPY
  5. VITAMIN C [Concomitant]
     Active Substance: ASCORBIC ACID

REACTIONS (8)
  - Bone formation increased [Unknown]
  - Vitreous detachment [Unknown]
  - Hypoaesthesia [Unknown]
  - Trigger finger [Recovering/Resolving]
  - Breast haemorrhage [Recovered/Resolved]
  - Weight decreased [Unknown]
  - Hormone level abnormal [Unknown]
  - Hair colour changes [Unknown]

NARRATIVE: CASE EVENT DATE: 2014
